FAERS Safety Report 15842867 (Version 1)
Quarter: 2018Q4

REPORT INFORMATION
  Report Type: Spontaneous
  Country: US (occurrence: US)
  Receive Date: 20181226
  Receipt Date: 20181226
  Transmission Date: 20190205
  Serious: No
  Sender: FDA-Public Use
  Company Number: None

PATIENT
  Age: 76 Year
  Sex: Male

DRUGS (12)
  1. RITUXIMAB. [Suspect]
     Active Substance: RITUXIMAB
     Indication: ARTHRALGIA
     Route: 042
     Dates: start: 20181128, end: 20181128
  2. RITUXIMAB. [Suspect]
     Active Substance: RITUXIMAB
     Indication: EOSINOPHILIA
     Route: 042
     Dates: start: 20181128, end: 20181128
  3. RITUXIMAB. [Suspect]
     Active Substance: RITUXIMAB
     Indication: EOSINOPHILIC GRANULOMATOSIS WITH POLYANGIITIS
     Route: 042
     Dates: start: 20181128, end: 20181128
  4. METHYLPREDNISOLONE. [Suspect]
     Active Substance: METHYLPREDNISOLONE
     Indication: ASTHMA
     Route: 048
     Dates: start: 20051125
  5. METHYLPREDNISOLONE. [Suspect]
     Active Substance: METHYLPREDNISOLONE
     Indication: ARTHRALGIA
     Route: 048
     Dates: start: 20051125
  6. RITUXIMAB. [Suspect]
     Active Substance: RITUXIMAB
     Indication: ASTHMA
     Route: 042
     Dates: start: 20181128, end: 20181128
  7. METHYLPREDNISOLONE. [Suspect]
     Active Substance: METHYLPREDNISOLONE
     Indication: RASH
     Route: 048
     Dates: start: 20051125
  8. METHYLPREDNISOLONE. [Suspect]
     Active Substance: METHYLPREDNISOLONE
     Indication: EPISCLERITIS
     Route: 048
     Dates: start: 20051125
  9. RITUXIMAB. [Suspect]
     Active Substance: RITUXIMAB
     Indication: RASH
     Route: 042
     Dates: start: 20181128, end: 20181128
  10. RITUXIMAB. [Suspect]
     Active Substance: RITUXIMAB
     Indication: EPISCLERITIS
     Route: 042
     Dates: start: 20181128, end: 20181128
  11. METHYLPREDNISOLONE. [Suspect]
     Active Substance: METHYLPREDNISOLONE
     Indication: EOSINOPHILIC GRANULOMATOSIS WITH POLYANGIITIS
     Route: 048
     Dates: start: 20051125
  12. METHYLPREDNISOLONE. [Suspect]
     Active Substance: METHYLPREDNISOLONE
     Indication: EOSINOPHILIA
     Route: 048
     Dates: start: 20051125

REACTIONS (6)
  - Leukocytosis [None]
  - Condition aggravated [None]
  - Hypoxia [None]
  - Steroid withdrawal syndrome [None]
  - Eosinophilic granulomatosis with polyangiitis [None]
  - Pyrexia [None]

NARRATIVE: CASE EVENT DATE: 20181212
